FAERS Safety Report 22712580 (Version 4)
Quarter: 2023Q4

REPORT INFORMATION
  Report Type: Spontaneous
  Country: US (occurrence: US)
  Receive Date: 20230717
  Receipt Date: 20231122
  Transmission Date: 20240110
  Serious: No
  Sender: FDA-Public Use
  Company Number: US-BRISTOL-MYERS SQUIBB COMPANY-2023-100219

PATIENT
  Age: 69 Year
  Sex: Female
  Weight: 62.6 kg

DRUGS (1)
  1. POMALYST [Suspect]
     Active Substance: POMALIDOMIDE
     Indication: Plasma cell myeloma
     Dosage: FREQUENCY: 3 WKS ON, 1 OFF?DAILY FOR 21DAYS
     Route: 048

REACTIONS (6)
  - Neutrophil count decreased [Unknown]
  - Off label use [Unknown]
  - Muscle spasms [Unknown]
  - Flushing [Unknown]
  - Back pain [Unknown]
  - Drug intolerance [Unknown]
